FAERS Safety Report 14119496 (Version 1)
Quarter: 2017Q4

REPORT INFORMATION
  Report Type: Spontaneous
  Country: US (occurrence: US)
  Receive Date: 20171024
  Receipt Date: 20171024
  Transmission Date: 20180321
  Serious: No
  Sender: FDA-Public Use
  Company Number: PHEH2017US033679

PATIENT
  Sex: Female

DRUGS (3)
  1. KISQALI [Suspect]
     Active Substance: RIBOCICLIB
     Indication: BREAST CANCER
     Dosage: 600 MG, QD
     Route: 048
     Dates: start: 20170209
  2. EXEMESTANE. [Concomitant]
     Active Substance: EXEMESTANE
     Indication: PRODUCT USED FOR UNKNOWN INDICATION
     Route: 065
  3. GLIPIZIDE. [Concomitant]
     Active Substance: GLIPIZIDE
     Indication: PRODUCT USED FOR UNKNOWN INDICATION
     Route: 065

REACTIONS (22)
  - Gastrooesophageal reflux disease [Unknown]
  - Rash [Recovering/Resolving]
  - Dysgeusia [Unknown]
  - Decreased appetite [Unknown]
  - Blood glucose decreased [Unknown]
  - Arthralgia [Not Recovered/Not Resolved]
  - Gastrointestinal sounds abnormal [Unknown]
  - Condition aggravated [Unknown]
  - Asthenia [Unknown]
  - Vision blurred [Unknown]
  - Joint swelling [Unknown]
  - Skin discolouration [Unknown]
  - Diarrhoea [Recovering/Resolving]
  - Joint stiffness [Unknown]
  - Pelvic pain [Not Recovered/Not Resolved]
  - Pain in extremity [Not Recovered/Not Resolved]
  - Tenderness [Unknown]
  - Insomnia [Unknown]
  - Pruritus [Unknown]
  - Nausea [Unknown]
  - Lymphoedema [Unknown]
  - Pityriasis rosea [Recovering/Resolving]

NARRATIVE: CASE EVENT DATE: 20170209
